FAERS Safety Report 14406568 (Version 1)
Quarter: 2018Q1

REPORT INFORMATION
  Report Type: Spontaneous
  Country: US (occurrence: US)
  Receive Date: 20180118
  Receipt Date: 20180118
  Transmission Date: 20180509
  Serious: Yes (Other)
  Sender: FDA-Public Use
  Company Number: None

PATIENT
  Age: 57 Year
  Sex: Female
  Weight: 115.67 kg

DRUGS (18)
  1. TRESIBA [Suspect]
     Active Substance: INSULIN DEGLUDEC
     Indication: DIABETES MELLITUS
     Dosage: DOSE - 5 PENS?ROUTE - INJECTION?FREQUENCY - 1 SHOT IN THE MORNING
     Dates: start: 20170715, end: 20170725
  2. PROBIOTIC [Concomitant]
     Active Substance: PROBIOTICS NOS
  3. CLARITIN [Concomitant]
     Active Substance: LORATADINE
  4. FUROSEMIDE. [Concomitant]
     Active Substance: FUROSEMIDE
  5. LOSARTAN POTASSIUM. [Concomitant]
     Active Substance: LOSARTAN POTASSIUM
  6. OXYCOD/ACETAM [Concomitant]
     Active Substance: ACETAMINOPHEN\OXYCODONE HYDROCHLORIDE
  7. TRAZODONE [Concomitant]
     Active Substance: TRAZODONE HYDROCHLORIDE
  8. MULTI VITAMIN [Concomitant]
     Active Substance: VITAMINS
  9. HUMALOG KWIKPEN [Concomitant]
     Active Substance: INSULIN LISPRO
  10. EZETIM/SIMVA [Concomitant]
  11. BLACK CHERRY [Concomitant]
  12. ALEVE [Concomitant]
     Active Substance: NAPROXEN SODIUM
  13. JANUVIA [Concomitant]
     Active Substance: SITAGLIPTIN PHOSPHATE
  14. LEVOTHYROXIN [Concomitant]
     Active Substance: LEVOTHYROXINE
  15. DULOXETINE. [Concomitant]
     Active Substance: DULOXETINE
  16. BUPROPION XL [Concomitant]
     Active Substance: BUPROPION
  17. PREDNISOLONE. [Concomitant]
     Active Substance: PREDNISOLONE
  18. ALPRAZOLAM. [Concomitant]
     Active Substance: ALPRAZOLAM

REACTIONS (11)
  - Joint surgery [None]
  - Arthralgia [None]
  - Peripheral swelling [None]
  - Walking aid user [None]
  - Gait disturbance [None]
  - Loss of personal independence in daily activities [None]
  - Ligament rupture [None]
  - Drug ineffective [None]
  - Dysstasia [None]
  - Quality of life decreased [None]
  - Joint swelling [None]

NARRATIVE: CASE EVENT DATE: 20170725
